FAERS Safety Report 9320869 (Version 1)
Quarter: 2013Q2

REPORT INFORMATION
  Report Type: Report from Study
  Country: US (occurrence: US)
  Receive Date: 20130531
  Receipt Date: 20130531
  Transmission Date: 20140414
  Serious: Yes (Life-Threatening)
  Sender: FDA-Public Use
  Company Number: PHEH2013US011829

PATIENT
  Age: 84 Year
  Sex: Male

DRUGS (1)
  1. EXELON PATCH [Suspect]
     Indication: DEMENTIA ALZHEIMER^S TYPE
     Route: 062
     Dates: end: 20130528

REACTIONS (1)
  - General physical health deterioration [Not Recovered/Not Resolved]
